FAERS Safety Report 8297029-2 (Version None)
Quarter: 2012Q2

REPORT INFORMATION
  Report Type: 
  Country: None (occurrence: None)
  Receive Date: 20120413
  Receipt Date: 20120405
  Transmission Date: 20120825
  Serious: Yes (Other)
  Sender: FDA-Public Use
  Company Number: 2012000064

PATIENT
  Age: 96 Year
  Sex: Female

DRUGS (11)
  1. ACEON [Suspect]
     Indication: HYPERTENSION
     Dosage: MG,QD, ORAL
     Route: 048
     Dates: start: 20111207
  2. FOLIC ACID [Concomitant]
  3. KANRENOL (POTASSIUM CANRENOATE) [Concomitant]
  4. AXAGON (ESOMEPRAZOLE) [Concomitant]
  5. NORMIX (RIFAXIMIN) [Concomitant]
  6. BENEXOL B (CYANOCOBALAMIN, PYRIDOXINE, THIAMINE) [Concomitant]
  7. CEBION (ASCORBIC ACID) [Concomitant]
  8. TORSEMIDE [Suspect]
     Indication: PRODUCT USED FOR UNKNOWN INDICATION
     Dosage: 5 MG,QD, ORAL
     Route: 048
     Dates: start: 20111207
  9. BENTELAN (BETAMETHASONE SODIUM PHOSPHATE) [Concomitant]
  10. ENOXAPARIN SODIUM [Concomitant]
  11. FERRO-GRAD (FERROUS SULFATE) [Concomitant]

REACTIONS (1)
  - SYNCOPE [None]
